FAERS Safety Report 9364767 (Version 1)
Quarter: 2013Q2

REPORT INFORMATION
  Report Type: Spontaneous
  Country: US (occurrence: US)
  Receive Date: 20130624
  Receipt Date: 20130624
  Transmission Date: 20140414
  Serious: Yes (Hospitalization)
  Sender: FDA-Public Use
  Company Number: US-DYAX CORP.-2013DX000117

PATIENT
  Age: 28 Year
  Sex: Female
  Weight: 65.83 kg

DRUGS (8)
  1. KALBITOR [Suspect]
     Indication: HEREDITARY ANGIOEDEMA
     Route: 058
     Dates: start: 201305, end: 201305
  2. KALBITOR [Suspect]
     Route: 058
     Dates: start: 201305, end: 201305
  3. KALBITOR [Suspect]
     Route: 058
     Dates: start: 201305, end: 201305
  4. KALBITOR [Suspect]
     Route: 058
     Dates: start: 20130509
  5. BERINERT [Concomitant]
     Indication: HEREDITARY ANGIOEDEMA
     Route: 042
     Dates: start: 201302
  6. CELEXA [Concomitant]
     Indication: DEPRESSION
     Route: 048
  7. OXANDROLONE [Concomitant]
     Indication: HEREDITARY ANGIOEDEMA
     Route: 048
  8. EPIPEN [Concomitant]
     Indication: ALLERGY TO ARTHROPOD BITE

REACTIONS (8)
  - Bronchitis [Recovered/Resolved]
  - Upper respiratory tract infection [Recovered/Resolved]
  - Anxiety [Unknown]
  - Dizziness [Unknown]
  - Constipation [Recovered/Resolved]
  - Asthma [Unknown]
  - Abdominal pain upper [Unknown]
  - Hereditary angioedema [Recovered/Resolved]
